FAERS Safety Report 4373944-7 (Version None)
Quarter: 2004Q2

REPORT INFORMATION
  Report Type: 
  Country: None (occurrence: None)
  Receive Date: 20040601
  Receipt Date: 20040405
  Transmission Date: 20050107
  Serious: Yes (Hospitalization)
  Sender: FDA-Public Use
  Company Number: 138740USA

PATIENT
  Age: 5 Year
  Sex: Male
  Weight: 19.1 kg

DRUGS (10)
  1. IFOSFAMIDE [Suspect]
     Indication: ACUTE LYMPHOCYTIC LEUKAEMIA
     Dates: start: 20040329, end: 20040401
  2. IFOSFAMIDE [Suspect]
     Indication: LEUKAEMIA RECURRENT
     Dates: start: 20040329, end: 20040401
  3. ETOPOSIDE [Concomitant]
  4. ONDANSETRON [Concomitant]
  5. MESNA [Concomitant]
  6. MIRALAX [Concomitant]
  7. EMLA [Concomitant]
  8. SENOKOT [Concomitant]
  9. NYSTATIN [Concomitant]
  10. IV FLUIDS NOS [Concomitant]

REACTIONS (6)
  - ASTHENIA [None]
  - CONFUSIONAL STATE [None]
  - DYSKINESIA [None]
  - LETHARGY [None]
  - MENTAL STATUS CHANGES [None]
  - NEUROPATHY [None]
